FAERS Safety Report 10658295 (Version 1)
Quarter: 2014Q4

REPORT INFORMATION
  Report Type: Spontaneous
  Country: US (occurrence: US)
  Receive Date: 20141217
  Receipt Date: 20141217
  Transmission Date: 20150529
  Serious: No
  Sender: FDA-Public Use
  Company Number: US-GLAXOSMITHKLINE-A1066296A

PATIENT

DRUGS (18)
  1. LORTAB TABLET [Concomitant]
  2. GLIPIZIDE TABLET [Concomitant]
     Active Substance: GLIPIZIDE
  3. MULTIVITAMIN CAPSULE [Concomitant]
  4. CALCIUM 500 TABLET [Concomitant]
  5. FUROSEMIDE TABLET [Concomitant]
  6. WARFARIN TABLET [Concomitant]
  7. HYDRALAZINE TABLET [Concomitant]
  8. POTASSIUM TABLET [Concomitant]
  9. VOTRIENT [Suspect]
     Active Substance: PAZOPANIB HYDROCHLORIDE
     Indication: LIPOSARCOMA
     Dosage: 200 MG AT 4 TABLETS (800 MG) DAILY
     Route: 048
  10. LYRICA CAPSULE [Concomitant]
  11. MAGNESIUM CAPSULE [Concomitant]
  12. FISH OIL CAPSULE [Concomitant]
  13. VESICARE [Concomitant]
     Active Substance: SOLIFENACIN SUCCINATE
  14. VITAMIN B12 TABLET [Concomitant]
  15. LOSARTAN POTASSIUM TABLET [Concomitant]
  16. BUPROPION TABLET [Concomitant]
     Active Substance: BUPROPION
  17. VITAMIN B6 TABLET [Concomitant]
  18. TRAMADOL HCL TABLET [Concomitant]

REACTIONS (1)
  - Myalgia [Unknown]
